FAERS Safety Report 8853282 (Version 1)
Quarter: 2012Q4

REPORT INFORMATION
  Report Type: 
  Country: DE (occurrence: DE)
  Receive Date: 20121022
  Receipt Date: 20121022
  Transmission Date: 20130627
  Serious: Yes (Other)
  Sender: FDA-Public Use
  Company Number: DE-GENZYME-POMP-1002441

PATIENT
  Age: 12 Year
  Sex: Female

DRUGS (1)
  1. MYOZYME [Suspect]
     Indication: GLYCOGEN STORAGE DISEASE TYPE II
     Dosage: 40 mg/kg, 1x/w
     Route: 042

REACTIONS (4)
  - Motor dysfunction [Unknown]
  - Cognitive disorder [Unknown]
  - Mechanical ventilation [Unknown]
  - Quadriplegia [Unknown]
